FAERS Safety Report 11325745 (Version 5)
Quarter: 2017Q2

REPORT INFORMATION
  Report Type: Report from Study
  Country: CA (occurrence: CA)
  Receive Date: 20150731
  Receipt Date: 20170629
  Transmission Date: 20170829
  Serious: Yes (Other)
  Sender: FDA-Public Use
  Company Number: CA-ROCHE-1429439

PATIENT
  Age: 36 Year
  Sex: Female

DRUGS (10)
  1. ACTEMRA [Suspect]
     Active Substance: TOCILIZUMAB
     Indication: RHEUMATOID ARTHRITIS
     Route: 058
     Dates: start: 20150404
  2. ACTONEL [Concomitant]
     Active Substance: RISEDRONATE SODIUM
  3. ACTEMRA [Suspect]
     Active Substance: TOCILIZUMAB
     Route: 058
     Dates: start: 201506
  4. PREDNISONE. [Concomitant]
     Active Substance: PREDNISONE
  5. ACTEMRA [Suspect]
     Active Substance: TOCILIZUMAB
     Route: 042
     Dates: start: 20140724
  6. REACTINE (CANADA) [Concomitant]
     Active Substance: CETIRIZINE HYDROCHLORIDE
  7. PANTOLOC [Concomitant]
     Active Substance: PANTOPRAZOLE SODIUM
  8. ATARAX [Concomitant]
     Active Substance: HYDROXYZINE HYDROCHLORIDE
  9. ACTEMRA [Suspect]
     Active Substance: TOCILIZUMAB
     Indication: POLYARTHRITIS
     Route: 042
     Dates: start: 20140423, end: 20150310
  10. METHOTREXATE. [Concomitant]
     Active Substance: METHOTREXATE

REACTIONS (12)
  - Oropharyngeal pain [Not Recovered/Not Resolved]
  - Conjunctivitis viral [Recovered/Resolved]
  - Infection [Unknown]
  - Arthralgia [Recovering/Resolving]
  - Drug ineffective [Unknown]
  - Injection site pain [Unknown]
  - Product size issue [Unknown]
  - Viral upper respiratory tract infection [Not Recovered/Not Resolved]
  - Musculoskeletal stiffness [Unknown]
  - Skin lesion [Unknown]
  - Arthralgia [Not Recovered/Not Resolved]
  - Panniculitis [Unknown]

NARRATIVE: CASE EVENT DATE: 20140822
